FAERS Safety Report 22134379 (Version 4)
Quarter: 2025Q2

REPORT INFORMATION
  Report Type: Report from Study
  Country: CA (occurrence: CA)
  Receive Date: 20230324
  Receipt Date: 20250424
  Transmission Date: 20250717
  Serious: Yes (Other)
  Sender: TAKEDA
  Company Number: CA-TAKEDA-2023TUS027575

PATIENT
  Sex: Female

DRUGS (13)
  1. VEDOLIZUMAB [Suspect]
     Active Substance: VEDOLIZUMAB
     Indication: Colitis ulcerative
  2. VEDOLIZUMAB [Suspect]
     Active Substance: VEDOLIZUMAB
     Dosage: 300 MILLIGRAM, Q4WEEKS
     Dates: start: 20230222
  3. VEDOLIZUMAB [Suspect]
     Active Substance: VEDOLIZUMAB
     Dosage: 300 MILLIGRAM, Q4WEEKS
  4. PREDNISONE [Concomitant]
     Active Substance: PREDNISONE
  5. CITALOPRAM [Concomitant]
     Active Substance: CITALOPRAM
  6. PERINDOPRIL [Concomitant]
     Active Substance: PERINDOPRIL
  7. LANSOPRAZOLE [Concomitant]
     Active Substance: LANSOPRAZOLE
  8. IBRANCE [Concomitant]
     Active Substance: PALBOCICLIB
  9. LETROZOLE [Concomitant]
     Active Substance: LETROZOLE
  10. VITAMIN C [Concomitant]
     Active Substance: ASCORBIC ACID
  11. ZINC [Concomitant]
     Active Substance: ZINC
  12. OMEGA 3 [Concomitant]
     Active Substance: CAPSAICIN
  13. MESALAMINE [Concomitant]
     Active Substance: MESALAMINE

REACTIONS (3)
  - Breast cancer metastatic [Unknown]
  - Bone neoplasm [Unknown]
  - Brain neoplasm [Unknown]
